FAERS Safety Report 18977282 (Version 2)
Quarter: 2021Q1

REPORT INFORMATION
  Report Type: Report from Study
  Country: US (occurrence: US)
  Receive Date: 20210306
  Receipt Date: 20210311
  Transmission Date: 20210420
  Serious: No
  Sender: FDA-Public Use
  Company Number: NVSC2021US047617

PATIENT
  Sex: Male

DRUGS (2)
  1. ENTRESTO [Suspect]
     Active Substance: SACUBITRIL\VALSARTAN
     Indication: PRODUCT USED FOR UNKNOWN INDICATION
     Dosage: 1 DF, BID
     Route: 048
  2. ENTRESTO [Suspect]
     Active Substance: SACUBITRIL\VALSARTAN
     Dosage: 1 DF (97/103 MG)
     Route: 048
     Dates: start: 20210302

REACTIONS (5)
  - Blood glucose increased [Unknown]
  - Blood potassium abnormal [Unknown]
  - Respiratory rate increased [Unknown]
  - Myalgia [Unknown]
  - Muscular weakness [Unknown]
